APPROVED DRUG PRODUCT: CLOMIPRAMINE HYDROCHLORIDE
Active Ingredient: CLOMIPRAMINE HYDROCHLORIDE
Strength: 75MG
Dosage Form/Route: CAPSULE;ORAL
Application: A074364 | Product #003 | TE Code: AB
Applicant: CHARTWELL RX SCIENCES LLC
Approved: Mar 29, 1996 | RLD: No | RS: No | Type: RX